FAERS Safety Report 5874374-9 (Version None)
Quarter: 2008Q3

REPORT INFORMATION
  Report Type: 
  Country: None (occurrence: None)
  Receive Date: 20080908
  Receipt Date: 20051221
  Transmission Date: 20090109
  Serious: Yes (Life-Threatening, Hospitalization)
  Sender: FDA-Public Use
  Company Number: DE-VALEANT-2008VX001559

PATIENT
  Age: 13 Year
  Sex: Female

DRUGS (2)
  1. DALMADORM ^ICN^ [Suspect]
     Route: 048
  2. DOXEPIN HCL [Suspect]
     Route: 048

REACTIONS (2)
  - MULTIPLE DRUG OVERDOSE INTENTIONAL [None]
  - SUICIDE ATTEMPT [None]
